FAERS Safety Report 8863328 (Version 1)
Quarter: 2012Q4

REPORT INFORMATION
  Report Type: 
  Country: JO (occurrence: JO)
  Receive Date: 20121025
  Receipt Date: 20121025
  Transmission Date: 20130627
  Serious: Yes (Life-Threatening, Hospitalization)
  Sender: FDA-Public Use
  Company Number: JO-ROCHE-1148647

PATIENT
  Age: 51 Year
  Sex: Female

DRUGS (6)
  1. XELODA [Suspect]
     Indication: COLORECTAL CANCER
     Route: 048
     Dates: start: 20121011, end: 20121012
  2. XELODA [Suspect]
     Route: 050
     Dates: start: 20120921
  3. AVASTIN [Suspect]
     Indication: COLORECTAL CANCER
     Route: 041
  4. AVASTIN [Suspect]
     Route: 050
  5. OXALIPLATIN [Concomitant]
     Indication: COLORECTAL CANCER
     Route: 041
     Dates: start: 20121011, end: 20121011
  6. OXALIPLATIN [Concomitant]
     Route: 065
     Dates: start: 20120921

REACTIONS (3)
  - Atrioventricular block second degree [Recovered/Resolved]
  - Hyperparathyroidism [Unknown]
  - Hypercalcaemia [Unknown]
